FAERS Safety Report 11439364 (Version 1)
Quarter: 2015Q3

REPORT INFORMATION
  Report Type: Spontaneous
  Country: US (occurrence: US)
  Receive Date: 20150901
  Receipt Date: 20150901
  Transmission Date: 20151125
  Serious: No
  Sender: FDA-Public Use
  Company Number: US-ROCHE-1139485

PATIENT
  Sex: Female

DRUGS (3)
  1. RIBAVIRIN. [Suspect]
     Active Substance: RIBAVIRIN
     Indication: HEPATITIS C
     Route: 065
     Dates: start: 20120413
  2. RIBAVIRIN. [Suspect]
     Active Substance: RIBAVIRIN
     Route: 065
  3. PEGASYS [Suspect]
     Active Substance: PEGINTERFERON ALFA-2A
     Indication: HEPATITIS C
     Route: 065
     Dates: start: 20120413, end: 20120921

REACTIONS (9)
  - Chills [Unknown]
  - Speech disorder [Unknown]
  - Dysgraphia [Unknown]
  - White blood cell count decreased [Unknown]
  - Eczema [Unknown]
  - Platelet count decreased [Unknown]
  - Dry skin [Unknown]
  - Rhinorrhoea [Unknown]
  - Disturbance in attention [Unknown]
